FAERS Safety Report 11387196 (Version 2)
Quarter: 2015Q3

REPORT INFORMATION
  Report Type: Report from Study
  Country: CA (occurrence: CA)
  Receive Date: 20150817
  Receipt Date: 20150821
  Transmission Date: 20151125
  Serious: Yes (Death, Hospitalization, Other)
  Sender: FDA-Public Use
  Company Number: CA-ROCHE-1459472

PATIENT
  Age: 71 Year
  Sex: Male

DRUGS (22)
  1. RITUXAN [Suspect]
     Active Substance: RITUXIMAB
     Indication: MYOPATHY
  2. PREDNISONE. [Suspect]
     Active Substance: PREDNISONE
     Indication: PRODUCT USED FOR UNKNOWN INDICATION
     Route: 065
  3. HYDROCHLOROTHIAZIDE. [Concomitant]
     Active Substance: HYDROCHLOROTHIAZIDE
     Indication: BLOOD PRESSURE MEASUREMENT
  4. DOXEPIN [Concomitant]
     Active Substance: DOXEPIN
  5. TYLENOL [Concomitant]
     Active Substance: ACETAMINOPHEN
  6. SALBUTAMOL [Concomitant]
     Active Substance: ALBUTEROL
  7. SPIRIVA [Concomitant]
     Active Substance: TIOTROPIUM BROMIDE MONOHYDRATE
  8. PANTOLOC [Concomitant]
     Active Substance: PANTOPRAZOLE SODIUM
  9. DIPHENHYDRAMINE HCL [Concomitant]
     Active Substance: DIPHENHYDRAMINE HYDROCHLORIDE
     Indication: PREMEDICATION
     Route: 048
     Dates: start: 20140822, end: 20150319
  10. DOMPERIDONE [Concomitant]
     Active Substance: DOMPERIDONE
  11. HYDROXYZINE [Concomitant]
     Active Substance: HYDROXYZINE\HYDROXYZINE HYDROCHLORIDE
  12. PROTRIN [Concomitant]
     Route: 065
  13. RITUXAN [Suspect]
     Active Substance: RITUXIMAB
     Indication: EOSINOPHILIC FASCIITIS
     Dosage: LAST DOSE: 05/MAR/2015
     Route: 042
     Dates: start: 20140822
  14. METHYLPREDNISOLONE. [Concomitant]
     Active Substance: METHYLPREDNISOLONE
     Indication: PREMEDICATION
     Route: 042
     Dates: start: 20140822, end: 20150319
  15. RISEDRONATE [Concomitant]
     Active Substance: RISEDRONATE SODIUM
  16. COLACE [Concomitant]
     Active Substance: DOCUSATE SODIUM
  17. METHOTREXATE [Concomitant]
     Active Substance: METHOTREXATE
  18. CLONAZEPAM. [Concomitant]
     Active Substance: CLONAZEPAM
     Route: 065
  19. ACETAMINOPHEN. [Concomitant]
     Active Substance: ACETAMINOPHEN
     Indication: PREMEDICATION
     Route: 048
     Dates: start: 20140822, end: 20150319
  20. COVERSYL [Concomitant]
     Active Substance: PERINDOPRIL
  21. FOLIC ACID. [Concomitant]
     Active Substance: FOLIC ACID
  22. PROTRIN DF [Concomitant]
     Dosage: 160-800 MG
     Route: 065

REACTIONS (9)
  - Scleroderma [Unknown]
  - Malaise [Unknown]
  - Pneumonia [Unknown]
  - Cataract [Not Recovered/Not Resolved]
  - Dizziness [Recovered/Resolved]
  - Infusion related reaction [Unknown]
  - Arthralgia [Unknown]
  - Off label use [Unknown]
  - Death [Fatal]

NARRATIVE: CASE EVENT DATE: 20140827
